FAERS Safety Report 5119214-0 (Version None)
Quarter: 2006Q4

REPORT INFORMATION
  Report Type: 
  Country: None (occurrence: None)
  Receive Date: 20061003
  Receipt Date: 20060921
  Transmission Date: 20070319
  Serious: Yes (Life-Threatening, Hospitalization, Disabling)
  Sender: FDA-Public Use
  Company Number: US-JNJFOC-20040703897

PATIENT
  Sex: Female
  Weight: 18.14 kg

DRUGS (4)
  1. CHILDREN'S MOTRIN [Suspect]
     Route: 048
  2. CHILDREN'S MOTRIN [Suspect]
     Indication: PYREXIA
     Route: 048
  3. TYLENOL [Concomitant]
     Dosage: DOSAGE UNKNOWN
  4. MELATONIN [Concomitant]
     Dosage: DOSAGE UNKNOWN

REACTIONS (42)
  - ACUTE HAEMORRHAGIC LEUKOENCEPHALITIS [None]
  - ACUTE RESPIRATORY DISTRESS SYNDROME [None]
  - BACTERAEMIA [None]
  - BACTERIAL TOXAEMIA [None]
  - BLINDNESS [None]
  - CARDIOVASCULAR DISORDER [None]
  - CEREBRAL HAEMORRHAGE [None]
  - CHOLECYSTITIS [None]
  - CHOLESTASIS [None]
  - COAGULOPATHY [None]
  - COGNITIVE DISORDER [None]
  - CONVULSION [None]
  - CORNEAL ABRASION [None]
  - DISSEMINATED INTRAVASCULAR COAGULATION [None]
  - DRUG DEPENDENCE [None]
  - EMBOLIC STROKE [None]
  - FUNGAEMIA [None]
  - GASTROINTESTINAL MOTILITY DISORDER [None]
  - HEPATIC FAILURE [None]
  - HEPATIC ISCHAEMIA [None]
  - HYPOACUSIS [None]
  - HYPOTENSION [None]
  - KERATOPATHY [None]
  - LACRIMATION INCREASED [None]
  - LUNG DISORDER [None]
  - OBLITERATIVE BRONCHIOLITIS [None]
  - OTITIS EXTERNA [None]
  - OTITIS MEDIA [None]
  - PHOTOPHOBIA [None]
  - PNEUMONIA [None]
  - PNEUMOTHORAX [None]
  - RENAL FAILURE [None]
  - RESPIRATORY DISTRESS [None]
  - RESPIRATORY FAILURE [None]
  - SHOCK [None]
  - SHUNT OCCLUSION [None]
  - STEVENS-JOHNSON SYNDROME [None]
  - THROMBOSIS [None]
  - TOXIC EPIDERMAL NECROLYSIS [None]
  - TRANSPLANT [None]
  - VIRAL UPPER RESPIRATORY TRACT INFECTION [None]
  - WEIGHT FLUCTUATION [None]
